FAERS Safety Report 14964686 (Version 1)
Quarter: 2018Q2

REPORT INFORMATION
  Report Type: Spontaneous
  Country: US (occurrence: US)
  Receive Date: 20180601
  Receipt Date: 20180601
  Transmission Date: 20180711
  Serious: Yes (Hospitalization, Other)
  Sender: FDA-Public Use
  Company Number: US-ASTRAZENECA-2018SE68980

PATIENT
  Age: 68 Year
  Sex: Female

DRUGS (7)
  1. SEROQUEL [Suspect]
     Active Substance: QUETIAPINE FUMARATE
     Route: 048
  2. WELLBUTRIN [Suspect]
     Active Substance: BUPROPION HYDROCHLORIDE
     Route: 065
  3. ATIVAN [Suspect]
     Active Substance: LORAZEPAM
     Route: 065
  4. LITHIUM CARBONATE. [Suspect]
     Active Substance: LITHIUM CARBONATE
     Indication: DEPRESSION
     Route: 065
  5. OMEPRAZOLE. [Suspect]
     Active Substance: OMEPRAZOLE
     Route: 048
  6. PAXIL [Suspect]
     Active Substance: PAROXETINE HYDROCHLORIDE
     Route: 065
  7. GABAPENTIN. [Suspect]
     Active Substance: GABAPENTIN
     Route: 065

REACTIONS (15)
  - Serotonin syndrome [Unknown]
  - Chest discomfort [Unknown]
  - Oropharyngeal scar [Unknown]
  - Lip swelling [Unknown]
  - Insomnia [Unknown]
  - Swollen tongue [Unknown]
  - Paraesthesia [Unknown]
  - Overdose [Unknown]
  - Hot flush [Unknown]
  - Swelling face [Unknown]
  - Dyspnoea [Unknown]
  - Pain [Unknown]
  - Dysphonia [Unknown]
  - Withdrawal syndrome [Unknown]
  - Mouth swelling [Unknown]

NARRATIVE: CASE EVENT DATE: 2015
